FAERS Safety Report 6571241-2 (Version None)
Quarter: 2010Q1

REPORT INFORMATION
  Report Type: 
  Country: None (occurrence: None)
  Receive Date: 20100129
  Receipt Date: 20100114
  Transmission Date: 20100710
  Serious: Yes (Life-Threatening, Hospitalization, Other)
  Sender: FDA-Public Use
  Company Number: 2010010034

PATIENT
  Age: 73 Year
  Sex: Female
  Weight: 58 kg

DRUGS (10)
  1. ZOLPIDEM [Suspect]
     Dosage: (10 MG, PER DAY)
  2. BROMAZEPAM (BROMAZEPAM) [Suspect]
     Dosage: (1 IN 1 D)
  3. AMIODARONE HCL [Concomitant]
  4. FLUINDIONE (FLUINDIONE) [Concomitant]
  5. DIPYRAMIDOLE (DIPYRAMIDOLE) [Concomitant]
  6. RAMIPRIL [Concomitant]
  7. GLICLAZIDE (GLICLAZIDE) [Concomitant]
  8. ATORVASTATIN CALCIUM [Concomitant]
  9. BETAHISTINE (BETAHISTINE) [Concomitant]
  10. AMLODIPINE [Concomitant]

REACTIONS (16)
  - BRADYPNOEA [None]
  - CIRCULATORY COLLAPSE [None]
  - COMA [None]
  - CONFUSIONAL STATE [None]
  - CREATININE RENAL CLEARANCE DECREASED [None]
  - ELECTROCARDIOGRAM PR PROLONGATION [None]
  - ELECTROCARDIOGRAM QRS COMPLEX SHORTENED [None]
  - HYPOTHERMIA [None]
  - INTENTIONAL OVERDOSE [None]
  - NERVOUS SYSTEM DISORDER [None]
  - PNEUMONIA ASPIRATION [None]
  - POISONING DELIBERATE [None]
  - PROTEIN TOTAL DECREASED [None]
  - PUPILLARY DISORDER [None]
  - SINUS BRADYCARDIA [None]
  - THERAPEUTIC AGENT TOXICITY [None]
